FAERS Safety Report 23279684 (Version 1)
Quarter: 2023Q4

REPORT INFORMATION
  Report Type: Spontaneous
  Country: GB (occurrence: GB)
  Receive Date: 20231210
  Receipt Date: 20231210
  Transmission Date: 20240109
  Serious: Yes (Death, Disabling, Other)
  Sender: FDA-Public Use
  Company Number: None

PATIENT
  Age: 84 Year
  Sex: Male

DRUGS (1)
  1. RISPERIDONE [Suspect]
     Active Substance: RISPERIDONE
     Indication: Product used for unknown indication
     Dosage: UNK
     Route: 065

REACTIONS (15)
  - Embolism [Fatal]
  - Bradykinesia [Fatal]
  - Gait disturbance [Fatal]
  - Gait disturbance [Fatal]
  - Depressed level of consciousness [Fatal]
  - Constipation [Fatal]
  - Drooling [Fatal]
  - Hallucination, tactile [Fatal]
  - Weight decreased [Fatal]
  - Decreased appetite [Fatal]
  - Yellow skin [Fatal]
  - Aphasia [Fatal]
  - Cough [Fatal]
  - Tremor [Fatal]
  - Conjunctivitis [Fatal]
